FAERS Safety Report 5813591-0 (Version None)
Quarter: 2008Q3

REPORT INFORMATION
  Report Type: 
  Country: None (occurrence: None)
  Receive Date: 20080717
  Receipt Date: 20080715
  Transmission Date: 20090109
  Serious: Yes (Other)
  Sender: FDA-Public Use
  Company Number: GB-WYE-H02268708

PATIENT
  Age: 44 Year
  Sex: Male

DRUGS (4)
  1. TIGECYCLINE [Suspect]
     Indication: APPENDICITIS PERFORATED
     Dosage: UNKNOWN
     Route: 065
  2. GENTAMICIN SULFATE [Suspect]
     Indication: APPENDICITIS PERFORATED
  3. METRONIDAZOLE HCL [Concomitant]
     Indication: APPENDICITIS PERFORATED
  4. CEFOXITIN [Suspect]
     Indication: APPENDICITIS PERFORATED

REACTIONS (1)
  - CLOSTRIDIAL INFECTION [None]
